FAERS Safety Report 15403691 (Version 11)
Quarter: 2018Q4

REPORT INFORMATION
  Report Type: Report from Study
  Country: JP (occurrence: JP)
  Receive Date: 20180919
  Receipt Date: 20181228
  Transmission Date: 20190204
  Serious: Yes (Other)
  Sender: FDA-Public Use
  Company Number: JP-TAKEDA-2018TUS025210

PATIENT
  Age: 70 Year
  Sex: Female

DRUGS (17)
  1. PONATINIB [Suspect]
     Active Substance: PONATINIB
     Dosage: 15 MG, UNK
     Route: 048
     Dates: start: 20180406, end: 20180427
  2. BAYASPIRIN [Concomitant]
     Active Substance: ASPIRIN
     Indication: PROPHYLAXIS
     Dosage: UNK
     Route: 065
     Dates: start: 20170220
  3. PONATINIB [Suspect]
     Active Substance: PONATINIB
     Dosage: 15 MG, UNK
     Route: 048
     Dates: start: 20180430, end: 20180528
  4. PONATINIB [Suspect]
     Active Substance: PONATINIB
     Dosage: 15 MG, QOD
     Route: 048
     Dates: start: 20180202, end: 20180228
  5. PONATINIB [Suspect]
     Active Substance: PONATINIB
     Dosage: 15 MG, UNK
     Route: 048
     Dates: start: 20180613, end: 20180618
  6. PONATINIB [Suspect]
     Active Substance: PONATINIB
     Dosage: 15 MG, QD
     Route: 048
     Dates: start: 20170308, end: 20170321
  7. PONATINIB [Suspect]
     Active Substance: PONATINIB
     Dosage: 15 MG, QOD
     Route: 048
     Dates: start: 20171109, end: 20171209
  8. PONATINIB [Suspect]
     Active Substance: PONATINIB
     Indication: CHRONIC MYELOID LEUKAEMIA
     Dosage: 15 MG, QOD
     Route: 048
     Dates: start: 20170220, end: 20170307
  9. PONATINIB [Suspect]
     Active Substance: PONATINIB
     Dosage: 15 MG, QOD
     Route: 048
     Dates: start: 20170324, end: 20170328
  10. PONATINIB [Suspect]
     Active Substance: PONATINIB
     Dosage: 15 MG, QOD
     Route: 048
     Dates: start: 20170415, end: 20170529
  11. PONATINIB [Suspect]
     Active Substance: PONATINIB
     Dosage: 15 MG, QOD
     Route: 048
     Dates: start: 20170911, end: 20171009
  12. BARACLUDE [Concomitant]
     Active Substance: ENTECAVIR
     Indication: PRODUCT USED FOR UNKNOWN INDICATION
     Dosage: UNK
     Route: 065
     Dates: end: 20180609
  13. PONATINIB [Suspect]
     Active Substance: PONATINIB
     Dosage: 15 MG, QOD
     Route: 048
     Dates: start: 20170630, end: 20170728
  14. PONATINIB [Suspect]
     Active Substance: PONATINIB
     Dosage: 15 MG, UNK
     Route: 048
     Dates: start: 20180820
  15. PONATINIB [Suspect]
     Active Substance: PONATINIB
     Dosage: 15 MG, UNK
     Route: 048
     Dates: start: 20180813, end: 20180816
  16. ENTECAVIR. [Concomitant]
     Active Substance: ENTECAVIR
     Indication: PRODUCT USED FOR UNKNOWN INDICATION
     Dosage: UNK
     Route: 065
     Dates: start: 20180609
  17. VALACICLOVIR [Concomitant]
     Active Substance: VALACYCLOVIR HYDROCHLORIDE
     Indication: PRODUCT USED FOR UNKNOWN INDICATION
     Dosage: UNK
     Route: 065
     Dates: start: 20180404, end: 20180408

REACTIONS (6)
  - Haemolytic anaemia [Recovering/Resolving]
  - Haemolytic anaemia [Recovering/Resolving]
  - Haemolytic anaemia [Recovering/Resolving]
  - Haemolytic anaemia [Not Recovered/Not Resolved]
  - Haemolytic anaemia [Recovering/Resolving]
  - Haemolytic anaemia [Recovering/Resolving]

NARRATIVE: CASE EVENT DATE: 20170320
